FAERS Safety Report 5978465-3 (Version None)
Quarter: 2008Q4

REPORT INFORMATION
  Report Type: 
  Country: None (occurrence: None)
  Receive Date: 20081204
  Receipt Date: 20081124
  Transmission Date: 20090506
  Serious: Yes (Other)
  Sender: FDA-Public Use
  Company Number: US-WYE-H06957908

PATIENT
  Age: 85 Year
  Sex: Male

DRUGS (2)
  1. PROTONIX [Suspect]
     Dosage: 40 MG , UNKNOWN FREQUENCY
     Route: 042
     Dates: start: 20081120
  2. CEFTRIAXONE [Concomitant]
     Dosage: 1 GM, UNKNOWN FREQUENCY

REACTIONS (3)
  - INJECTION SITE EXTRAVASATION [None]
  - SKIN EXFOLIATION [None]
  - SKIN WARM [None]
